FAERS Safety Report 9871396 (Version 1)
Quarter: 2014Q1

REPORT INFORMATION
  Report Type: Spontaneous
  Country: IT (occurrence: IT)
  Receive Date: 20140205
  Receipt Date: 20140205
  Transmission Date: 20141002
  Serious: Yes (Other)
  Sender: FDA-Public Use
  Company Number: IT-WATSON-2014-01528

PATIENT
  Age: 46 Year
  Sex: Female

DRUGS (3)
  1. LORAZEPAM (UNKNOWN) [Suspect]
     Indication: INSOMNIA
     Dosage: 10 MG, TOTAL
     Route: 048
     Dates: start: 20131106, end: 20131106
  2. LORAZEPAM (UNKNOWN) [Suspect]
     Dosage: 1 MG, DAILY
     Route: 048
     Dates: start: 201310, end: 20131105
  3. NIMESULIDE [Concomitant]
     Indication: HEADACHE
     Dosage: 1 DF, UNK
     Route: 048

REACTIONS (2)
  - Overdose [Recovered/Resolved]
  - Sopor [Recovered/Resolved]
